FAERS Safety Report 8819340 (Version 1)
Quarter: 2012Q4

REPORT INFORMATION
  Report Type: Spontaneous
  Country: US (occurrence: None)
  Receive Date: 20121004
  Receipt Date: 20121004
  Transmission Date: 20130627
  Serious: No
  Sender: FDA-Public Use
  Company Number: DL2012-0566

PATIENT
  Age: 25 Year
  Sex: Female

DRUGS (3)
  1. MIFEPRISTONE [Suspect]
     Indication: TERMINATION OF PREGNANCY
     Dates: start: 20120517
  2. DOXYCYCLINE [Concomitant]
  3. MISOPROSTOL TABLETS, 200 MG [Suspect]

REACTIONS (1)
  - Ectopic pregnancy [None]
